FAERS Safety Report 13341730 (Version 1)
Quarter: 2017Q1

REPORT INFORMATION
  Report Type: Spontaneous
  Country: US (occurrence: US)
  Receive Date: 20170316
  Receipt Date: 20170316
  Transmission Date: 20170428
  Serious: No
  Sender: FDA-Public Use
  Company Number: US-ROCHE-1877213

PATIENT
  Age: 66 Year
  Sex: Male

DRUGS (2)
  1. ERIVEDGE [Suspect]
     Active Substance: VISMODEGIB
     Dosage: 150 MG BY MOUTH ONCE EVERY OTHER DAY ;ONGOING: NO
     Route: 048
     Dates: start: 20161209, end: 20170106
  2. ERIVEDGE [Suspect]
     Active Substance: VISMODEGIB
     Indication: SQUAMOUS CELL CARCINOMA
     Dosage: NO
     Route: 065
     Dates: start: 20161024

REACTIONS (1)
  - Hepatic enzyme increased [Unknown]

NARRATIVE: CASE EVENT DATE: 20161130
